FAERS Safety Report 21265651 (Version 1)
Quarter: 2022Q3

REPORT INFORMATION
  Report Type: Spontaneous
  Country: ES (occurrence: ES)
  Receive Date: 20220829
  Receipt Date: 20220829
  Transmission Date: 20221027
  Serious: Yes (Hospitalization, Congenital Anomaly, Other)
  Sender: FDA-Public Use
  Company Number: ES-Eisai Medical Research-EC-2022-120751

PATIENT

DRUGS (7)
  1. LEVETIRACETAM [Suspect]
     Active Substance: LEVETIRACETAM
     Indication: Idiopathic generalised epilepsy
     Dosage: 4000 MG/DAY
     Route: 064
  2. VALPROIC ACID [Suspect]
     Active Substance: VALPROIC ACID
     Dosage: 4800 MG/DAY
     Route: 064
  3. MIDAZOLAM [Suspect]
     Active Substance: MIDAZOLAM
     Dosage: 12 ML (12 ML/HR)
     Route: 064
  4. LACOSAMIDE [Suspect]
     Active Substance: LACOSAMIDE
     Dosage: 200 MG, 2X/DAY (200 MG/ 12H)
     Route: 064
  5. PERAMPANEL [Suspect]
     Active Substance: PERAMPANEL
     Dosage: 12 MG
     Route: 064
  6. PROPOFOL [Suspect]
     Active Substance: PROPOFOL
     Dosage: 15 ML (15 ML/ HR)
     Route: 064
  7. BRIVARACETAM [Suspect]
     Active Substance: BRIVARACETAM
     Dosage: 100 MG, 2X/DAY (FREQ:12 H)
     Route: 064

REACTIONS (5)
  - Maternal exposure during pregnancy [Unknown]
  - Coagulopathy [Unknown]
  - Pulmonary haemorrhage neonatal [Unknown]
  - Intestinal atresia [Unknown]
  - Premature baby [Unknown]
